FAERS Safety Report 13060292 (Version 2)
Quarter: 2017Q1

REPORT INFORMATION
  Report Type: Report from Study
  Country: HT (occurrence: HT)
  Receive Date: 20161223
  Receipt Date: 20170120
  Transmission Date: 20170428
  Serious: Yes (Hospitalization)
  Sender: FDA-Public Use
  Company Number: HT-IMPAX LABORATORIES, INC-2016-IPXL-02411

PATIENT
  Age: 35 Year
  Sex: Male

DRUGS (2)
  1. ALBENZA [Suspect]
     Active Substance: ALBENDAZOLE
     Indication: FILARIASIS LYMPHATIC
     Dosage: 4 TABLET OF 100 MG, 1 /DAY
     Route: 048
     Dates: start: 20161129
  2. DIETHYLCARBAMAZINE [Suspect]
     Active Substance: DIETHYLCARBAMAZINE
     Indication: FILARIASIS LYMPHATIC
     Dosage: 400 MG, 1 /DAY
     Route: 048
     Dates: start: 20161129

REACTIONS (3)
  - Genitourinary tract infection [Recovered/Resolved]
  - Helicobacter infection [Recovered/Resolved]
  - Off label use [Unknown]

NARRATIVE: CASE EVENT DATE: 20161128
